FAERS Safety Report 5051458-9 (Version None)
Quarter: 2006Q3

REPORT INFORMATION
  Report Type: 
  Country: None (occurrence: None)
  Receive Date: 20060710
  Receipt Date: 20060608
  Transmission Date: 20061208
  Serious: Yes (Other)
  Sender: FDA-Public Use
  Company Number: 2006073970

PATIENT
  Age: 54 Year
  Sex: Male
  Weight: 86.1834 kg

DRUGS (3)
  1. CELEBREX [Suspect]
     Indication: INTERVERTEBRAL DISC DISORDER
     Dosage: 200 MG (200 MG, 1 IN 1 D)
     Dates: start: 20060601, end: 20060603
  2. BISOPROLOL FUMARATE [Concomitant]
  3. ALLOPURINOL [Concomitant]

REACTIONS (6)
  - BLISTER [None]
  - ERYTHEMA [None]
  - IMPAIRED WORK ABILITY [None]
  - LOCAL SWELLING [None]
  - OEDEMA PERIPHERAL [None]
  - PRURITUS [None]
